FAERS Safety Report 25160579 (Version 1)
Quarter: 2025Q2

REPORT INFORMATION
  Report Type: Spontaneous
  Country: US (occurrence: US)
  Receive Date: 20250404
  Receipt Date: 20250404
  Transmission Date: 20250716
  Serious: No
  Sender: MANKIND PHARMA
  Company Number: US-MankindUS-000305

PATIENT
  Age: 79 Year
  Sex: Female
  Weight: 74.84 kg

DRUGS (1)
  1. FORMOTEROL FUMARATE [Suspect]
     Active Substance: FORMOTEROL FUMARATE
     Indication: Chronic obstructive pulmonary disease
     Dates: start: 20241225

REACTIONS (4)
  - Product odour abnormal [Unknown]
  - Product substitution issue [Unknown]
  - Oropharyngeal pain [Unknown]
  - Nausea [Unknown]

NARRATIVE: CASE EVENT DATE: 20241226
